FAERS Safety Report 17351401 (Version 1)
Quarter: 2020Q1

REPORT INFORMATION
  Report Type: Spontaneous
  Country: CA (occurrence: CA)
  Receive Date: 20200130
  Receipt Date: 20200130
  Transmission Date: 20200409
  Serious: Yes (Disabling)
  Sender: FDA-Public Use
  Company Number: CA-TEVA-2020-CA-1176483

PATIENT
  Age: 5 Year
  Sex: Male
  Weight: 28 kg

DRUGS (17)
  1. ONDANSETRON [Concomitant]
     Active Substance: ONDANSETRON
  2. TOBRAMYCIN. [Concomitant]
     Active Substance: TOBRAMYCIN
  3. VINCRISTINE SULFATE. [Concomitant]
     Active Substance: VINCRISTINE SULFATE
  4. MORPHINE [Concomitant]
     Active Substance: MORPHINE
  5. LORAZEPAM. [Concomitant]
     Active Substance: LORAZEPAM
  6. METOCLOPRAMIDE. [Concomitant]
     Active Substance: METOCLOPRAMIDE
  7. CEFAZOLIN [Concomitant]
     Active Substance: CEFAZOLIN
  8. DIMENHYDRINATE. [Concomitant]
     Active Substance: DIMENHYDRINATE
  9. DIPHENHYDRAMINE. [Concomitant]
     Active Substance: DIPHENHYDRAMINE
  10. TIMENTIN [Concomitant]
     Active Substance: CLAVULANATE POTASSIUM\TICARCILLIN DISODIUM
  11. CODEINE [Concomitant]
     Active Substance: CODEINE
  12. ETOPOSIDE. [Concomitant]
     Active Substance: ETOPOSIDE
  13. PENTAMIDINE ISETHIONATE INJ 300MG/VIAL BP [Concomitant]
  14. CISPLATIN INJECTION [Suspect]
     Active Substance: CISPLATIN
     Indication: MEDULLOBLASTOMA
     Route: 042
  15. DEXAMETHASONE. [Concomitant]
     Active Substance: DEXAMETHASONE
  16. ACETAMINOPHEN. [Concomitant]
     Active Substance: ACETAMINOPHEN
  17. HEPARIN SODIUM. [Concomitant]
     Active Substance: HEPARIN SODIUM

REACTIONS (2)
  - Neurosensory hypoacusis [Not Recovered/Not Resolved]
  - Ototoxicity [Not Recovered/Not Resolved]
